FAERS Safety Report 4431977-6 (Version None)
Quarter: 2004Q3

REPORT INFORMATION
  Report Type: 
  Country: None (occurrence: None)
  Receive Date: 20040818
  Receipt Date: 20040730
  Transmission Date: 20050211
  Serious: Yes (Death)
  Sender: FDA-Public Use
  Company Number: USA040874495

PATIENT
  Sex: Female

DRUGS (3)
  1. ZYPREXA [Suspect]
  2. ALBUTEROL [Concomitant]
  3. PAXIL [Concomitant]

REACTIONS (1)
  - DRUG LEVEL [None]
